FAERS Safety Report 23176989 (Version 1)
Quarter: 2023Q4

REPORT INFORMATION
  Report Type: Report from Study
  Country: US (occurrence: US)
  Receive Date: 20231113
  Receipt Date: 20231113
  Transmission Date: 20240110
  Serious: Yes (Other)
  Sender: FDA-Public Use
  Company Number: US-MYLANLABS-2023M1120839

PATIENT
  Sex: Female
  Weight: 54.43 kg

DRUGS (3)
  1. AMLODIPINE [Suspect]
     Active Substance: AMLODIPINE BESYLATE
     Indication: Hypertension
     Dosage: 5 MILLIGRAM, QD (5MG IN THE MORNING)
     Route: 048
     Dates: start: 2016
  2. AMLODIPINE [Suspect]
     Active Substance: AMLODIPINE BESYLATE
     Indication: Hypertension
     Dosage: 2.5 MILLIGRAM, QD (2.5 MG IN THE EVENING)
     Route: 048
     Dates: start: 2016
  3. TOVIAZ [Suspect]
     Active Substance: FESOTERODINE FUMARATE
     Indication: Incontinence
     Dosage: 1 DOSAGE FORM, QD (ONE TABLET ONCE A DAY BY MOUTH)
     Route: 048
     Dates: start: 2013

REACTIONS (3)
  - Loss of consciousness [Unknown]
  - Hypotension [Unknown]
  - Extra dose administered [Unknown]

NARRATIVE: CASE EVENT DATE: 20200101
